FAERS Safety Report 23596161 (Version 1)
Quarter: 2024Q1

REPORT INFORMATION
  Report Type: Spontaneous
  Country: RO (occurrence: None)
  Receive Date: 20240305
  Receipt Date: 20240305
  Transmission Date: 20240410
  Serious: Yes (Other)
  Sender: FDA-Public Use
  Company Number: RO-AMGEN-ROUSP2024021809

PATIENT
  Age: 67 Year
  Sex: Male

DRUGS (6)
  1. BEVACIZUMAB [Suspect]
     Active Substance: BEVACIZUMAB
     Indication: Product used for unknown indication
     Route: 065
     Dates: start: 202209
  2. VECTIBIX [Suspect]
     Active Substance: PANITUMUMAB
     Indication: Product used for unknown indication
     Dosage: UNK
     Route: 065
     Dates: start: 20210521
  3. CAPECITABINE [Concomitant]
     Active Substance: CAPECITABINE
     Dosage: UNK UNK, Q3WK
     Route: 048
     Dates: start: 202302
  4. LEUCOVORIN [Concomitant]
     Active Substance: LEUCOVORIN\LEUCOVORIN CALCIUM
     Dosage: UNK
     Dates: start: 20210521
  5. OXALIPLATIN [Concomitant]
     Active Substance: OXALIPLATIN
  6. FLUOROURACIL [Concomitant]
     Active Substance: FLUOROURACIL

REACTIONS (22)
  - Angina pectoris [Unknown]
  - Hepatotoxicity [Unknown]
  - Hypokalaemia [Unknown]
  - Deep vein thrombosis [Unknown]
  - Disease progression [Unknown]
  - Sepsis [Unknown]
  - Neuropathy peripheral [Unknown]
  - Mucosal toxicity [Unknown]
  - Hypomagnesaemia [Unknown]
  - Paronychia [Unknown]
  - Balanoposthitis [Unknown]
  - Alopecia [Unknown]
  - Xeroderma [Unknown]
  - COVID-19 [Unknown]
  - Nasal ulcer [Unknown]
  - Onycholysis [Unknown]
  - Hypocalcaemia [Unknown]
  - Phimosis [Unknown]
  - Traumatic ulcer [Unknown]
  - Skin toxicity [Unknown]
  - Skin hyperpigmentation [Unknown]
  - Skin fissures [Unknown]

NARRATIVE: CASE EVENT DATE: 20210601
